FAERS Safety Report 8158124-1 (Version None)
Quarter: 2012Q1

REPORT INFORMATION
  Report Type: 
  Country: None (occurrence: None)
  Receive Date: 20120222
  Receipt Date: 20120213
  Transmission Date: 20120608
  Serious: Yes (Other)
  Sender: FDA-Public Use
  Company Number: US-ASTRAZENECA-2012SE09555

PATIENT
  Sex: Male

DRUGS (1)
  1. LISINOPRIL [Suspect]
     Indication: ORGAN PRESERVATION
     Route: 048

REACTIONS (3)
  - TYPE 2 DIABETES MELLITUS [None]
  - MASTOCYTOSIS [None]
  - OFF LABEL USE [None]
